FAERS Safety Report 6374094-0 (Version None)
Quarter: 2009Q3

REPORT INFORMATION
  Report Type: 
  Country: None (occurrence: None)
  Receive Date: 20090924
  Receipt Date: 20090714
  Transmission Date: 20100115
  Serious: No
  Sender: FDA-Public Use
  Company Number: US-ASTRAZENECA-2009UW19765

PATIENT
  Sex: Male

DRUGS (2)
  1. SEROQUEL [Suspect]
     Route: 048
  2. RISPERIDONE [Concomitant]

REACTIONS (3)
  - CONFUSIONAL STATE [None]
  - INSOMNIA [None]
  - SEXUAL DYSFUNCTION [None]
